FAERS Safety Report 9290370 (Version 3)
Quarter: 2013Q2

REPORT INFORMATION
  Report Type: Spontaneous
  Country: US (occurrence: US)
  Receive Date: 20130515
  Receipt Date: 20130614
  Transmission Date: 20140414
  Serious: No
  Sender: FDA-Public Use
  Company Number: US-PFIZER INC-2013148908

PATIENT
  Age: 61 Year
  Sex: Female
  Weight: 61.22 kg

DRUGS (3)
  1. ALAVERT [Suspect]
     Indication: HYPERSENSITIVITY
     Dosage: 10MG TABLET ONCE A DAY
     Route: 048
     Dates: start: 20130429, end: 20130429
  2. LOVASTATIN [Concomitant]
     Dosage: UNK
  3. VITAMIN D [Concomitant]
     Dosage: UNK

REACTIONS (2)
  - Rash [Recovering/Resolving]
  - Product taste abnormal [Recovering/Resolving]
